FAERS Safety Report 4955147-8 (Version None)
Quarter: 2006Q1

REPORT INFORMATION
  Report Type: 
  Country: None (occurrence: None)
  Receive Date: 20060328
  Receipt Date: 20060316
  Transmission Date: 20060701
  Serious: Yes (Other)
  Sender: FDA-Public Use
  Company Number: US-JNJFOC-20060104324

PATIENT
  Sex: Female
  Weight: 73.03 kg

DRUGS (13)
  1. REMICADE [Suspect]
     Indication: CROHN'S DISEASE
     Dosage: THIS WAS PATIENT'S FIRST INFUSION.
     Route: 042
  2. BENADRYL [Concomitant]
     Indication: PREMEDICATION
  3. CLARITIN [Concomitant]
     Indication: PREMEDICATION
  4. PREVACID [Concomitant]
  5. AGGRENOX [Concomitant]
  6. AGGRENOX [Concomitant]
  7. KLOR-CON [Concomitant]
  8. LASIX [Concomitant]
  9. MOBIC [Concomitant]
  10. LOPID [Concomitant]
  11. ZOCOR [Concomitant]
  12. ATIVAN [Concomitant]
  13. METFORMIN [Concomitant]

REACTIONS (6)
  - APHASIA [None]
  - BLOOD PRESSURE DECREASED [None]
  - DIZZINESS [None]
  - HEADACHE [None]
  - INFUSION RELATED REACTION [None]
  - VISION BLURRED [None]
